FAERS Safety Report 5320667-3 (Version None)
Quarter: 2007Q2

REPORT INFORMATION
  Report Type: 
  Country: None (occurrence: None)
  Receive Date: 20070509
  Receipt Date: 20070427
  Transmission Date: 20071010
  Serious: Yes (Hospitalization)
  Sender: FDA-Public Use
  Company Number: FR-PFIZER INC-2007027368

PATIENT
  Age: 73 Year
  Sex: Male
  Weight: 100 kg

DRUGS (6)
  1. TAHOR [Suspect]
     Route: 048
  2. PREVISCAN [Suspect]
     Route: 048
  3. SERENOA REPENS EXTRACT [Concomitant]
     Route: 048
  4. BETAHISTINE [Concomitant]
     Route: 048
  5. LORAZEPAM [Concomitant]
     Route: 048
  6. TRIMETAZIDINE [Concomitant]
     Route: 048

REACTIONS (3)
  - CEREBRAL HAEMORRHAGE [None]
  - HAEMATOMA [None]
  - HEMIPLEGIA [None]
